FAERS Safety Report 6194616-2 (Version None)
Quarter: 2009Q2

REPORT INFORMATION
  Report Type: 
  Country: None (occurrence: None)
  Receive Date: 20090519
  Receipt Date: 20090518
  Transmission Date: 20091009
  Serious: Yes (Death, Life-Threatening, Hospitalization)
  Sender: FDA-Public Use
  Company Number: FR-BRISTOL-MYERS SQUIBB COMPANY-14587638

PATIENT
  Age: 42 Year
  Sex: Female

DRUGS (9)
  1. REYATAZ [Suspect]
     Indication: ANTIRETROVIRAL THERAPY
     Dates: start: 20081219, end: 20090325
  2. NORVIR [Suspect]
     Indication: ANTIRETROVIRAL THERAPY
     Dosage: NORVIR 100MG
     Dates: start: 20081219, end: 20090325
  3. TRUVADA [Suspect]
     Indication: ANTIRETROVIRAL THERAPY
     Dates: start: 20081219, end: 20090320
  4. ANDROCUR [Suspect]
     Dates: start: 20081101, end: 20090325
  5. DIANE [Suspect]
     Dates: end: 20090325
  6. KARDEGIC [Concomitant]
  7. ZESTRIL [Concomitant]
  8. CARDENSIEL [Concomitant]
  9. PREVISCAN [Concomitant]

REACTIONS (2)
  - HEPATIC ENCEPHALOPATHY [None]
  - HEPATITIS FULMINANT [None]
